FAERS Safety Report 6917998-X (Version None)
Quarter: 2010Q3

REPORT INFORMATION
  Report Type: 
  Country: None (occurrence: None)
  Receive Date: 20100810
  Receipt Date: 20091030
  Transmission Date: 20110219
  Serious: No
  Sender: FDA-Public Use
  Company Number: US-PFIZER INC-2009272300

PATIENT
  Sex: Female
  Weight: 52.2 kg

DRUGS (1)
  1. TOVIAZ [Suspect]
     Indication: HYPERTONIC BLADDER
     Dosage: 8 MG, UNK
     Dates: start: 20090915, end: 20090915

REACTIONS (2)
  - DRY MOUTH [None]
  - DYSURIA [None]
